FAERS Safety Report 6007288-4 (Version None)
Quarter: 2008Q4

REPORT INFORMATION
  Report Type: 
  Country: None (occurrence: None)
  Receive Date: 20081217
  Receipt Date: 20080225
  Transmission Date: 20090506
  Serious: No
  Sender: FDA-Public Use
  Company Number: US-ASTRAZENECA-2008UW03895

PATIENT
  Age: 71 Year
  Sex: Female
  Weight: 74.8 kg

DRUGS (10)
  1. CRESTOR [Suspect]
     Indication: BLOOD CHOLESTEROL INCREASED
     Route: 048
     Dates: start: 20080101
  2. WELLBUTRIN [Concomitant]
  3. PROTONIX [Concomitant]
  4. ATIVAN [Concomitant]
  5. ATENOLOL [Concomitant]
  6. TEMAZEPAM [Concomitant]
  7. METFORMIN HCL [Concomitant]
  8. NIFEDIPINE [Concomitant]
  9. ASPIRIN [Concomitant]
  10. FISH PILLS [Concomitant]

REACTIONS (3)
  - ABDOMINAL DISCOMFORT [None]
  - INSOMNIA [None]
  - MALAISE [None]
